FAERS Safety Report 19249854 (Version 1)
Quarter: 2021Q2

REPORT INFORMATION
  Report Type: Spontaneous
  Country: PT (occurrence: PT)
  Receive Date: 20210513
  Receipt Date: 20210513
  Transmission Date: 20210717
  Serious: Yes (Hospitalization, Other)
  Sender: FDA-Public Use
  Company Number: PT-AMGEN-PRTSP2021069658

PATIENT
  Age: 61 Year
  Sex: Female

DRUGS (18)
  1. TRASTUZUMAB. [Suspect]
     Active Substance: TRASTUZUMAB
     Indication: BREAST CANCER
     Dosage: 6 MICROGRAM/KILOGRAM, Q3WK
     Route: 042
     Dates: start: 20170120, end: 20170323
  2. TRASTUZUMAB. [Suspect]
     Active Substance: TRASTUZUMAB
     Dosage: 6 MICROGRAM/KILOGRAM, Q3WK
     Route: 042
     Dates: start: 20170504, end: 20170830
  3. DOCETAXEL. [Suspect]
     Active Substance: DOCETAXEL
     Dosage: 75 MILLIGRAM/SQ. METER, Q3WK
     Route: 042
     Dates: start: 20170323, end: 20170504
  4. OLANZAPINA [Concomitant]
     Active Substance: OLANZAPINE
     Dosage: UNK
     Dates: start: 20170615, end: 20190401
  5. PIPERACILINA [Concomitant]
     Active Substance: PIPERACILLIN
     Indication: LARGE INTESTINE INFECTION
     Dosage: UNK
  6. CAPTOPRIL. [Concomitant]
     Active Substance: CAPTOPRIL
     Dosage: UNK
     Dates: start: 20180313, end: 20190214
  7. PERTUZUMAB. [Suspect]
     Active Substance: PERTUZUMAB
     Indication: BREAST CANCER
     Dosage: 420 MICROGRAM, Q3WK
     Route: 042
     Dates: start: 20170213, end: 20170323
  8. TRASTUZUMAB. [Suspect]
     Active Substance: TRASTUZUMAB
     Dosage: 6 MICROGRAM/KILOGRAM, Q3WK
     Route: 042
     Dates: start: 20180221, end: 20181218
  9. OMEPRAZOL [OMEPRAZOLE] [Concomitant]
     Active Substance: OMEPRAZOLE
     Dosage: UNK
     Dates: start: 20170515
  10. PERTUZUMAB. [Suspect]
     Active Substance: PERTUZUMAB
     Dosage: 420 MICROGRAM, Q3WK
     Route: 042
     Dates: start: 20170504, end: 20170531
  11. DOCETAXEL. [Suspect]
     Active Substance: DOCETAXEL
     Indication: BREAST CANCER
     Dosage: 75 MILLIGRAM/SQ. METER, Q3WK
     Route: 042
     Dates: start: 20170120
  12. DEPAKINE [VALPROIC ACID] [Concomitant]
     Active Substance: VALPROIC ACID
     Dosage: UNK
     Dates: start: 20180319
  13. DIAZEPAM. [Concomitant]
     Active Substance: DIAZEPAM
     Dosage: UNK
     Dates: start: 20180319
  14. TAZOBACTAM [Concomitant]
     Active Substance: TAZOBACTAM
     Indication: LARGE INTESTINE INFECTION
     Dosage: UNK
  15. TRASTUZUMAB. [Suspect]
     Active Substance: TRASTUZUMAB
     Dosage: 6 MICROGRAM/KILOGRAM, Q3WK
     Route: 042
     Dates: start: 20171010, end: 20180102
  16. TRASTUZUMAB. [Suspect]
     Active Substance: TRASTUZUMAB
     Dosage: 6 MICROGRAM/KILOGRAM, Q3WK
     Route: 042
     Dates: start: 20190116
  17. ZOLEDRONIC ACID [Suspect]
     Active Substance: ZOLEDRONIC ACID
     Indication: BREAST CANCER
     Dosage: 5 MICROGRAM/KILOGRAM, Q3WK
     Route: 042
     Dates: start: 20180830, end: 20190116
  18. ZOLEDRONIC ACID [Suspect]
     Active Substance: ZOLEDRONIC ACID
     Dosage: 5 MICROGRAM/KILOGRAM, Q3WK
     Route: 042
     Dates: start: 20190221

REACTIONS (3)
  - Influenza [Recovered/Resolved]
  - Respiratory tract infection [Recovered/Resolved]
  - Off label use [Unknown]

NARRATIVE: CASE EVENT DATE: 20180121
